FAERS Safety Report 4349000-0 (Version None)
Quarter: 2004Q2

REPORT INFORMATION
  Report Type: 
  Country: None (occurrence: None)
  Receive Date: 20040427
  Receipt Date: 20040427
  Transmission Date: 20050107
  Serious: Yes (Hospitalization)
  Sender: FDA-Public Use
  Company Number: None

PATIENT
  Age: 78 Year
  Sex: Female
  Weight: 75.6 kg

DRUGS (17)
  1. NAVELBINE [Suspect]
  2. EXISULIND [Suspect]
  3. AMBIEN [Concomitant]
  4. ANUSOL [Concomitant]
  5. ASPIRIN [Concomitant]
  6. BENADRYL [Concomitant]
  7. BENZONATATE [Concomitant]
  8. COMPAZINE [Concomitant]
  9. COUMADIN [Concomitant]
  10. DIOVAN HCT [Concomitant]
  11. FOLIC ACID [Concomitant]
  12. NORVASC [Concomitant]
  13. ROLAIDS [Concomitant]
  14. SLOW RELEASE IRON [Concomitant]
  15. SYNTHROID [Concomitant]
  16. TAMOXIFEN CITRATE [Concomitant]
  17. TOPROL-XL [Concomitant]

REACTIONS (1)
  - FEBRILE NEUTROPENIA [None]
